FAERS Safety Report 14936949 (Version 1)
Quarter: 2018Q2

REPORT INFORMATION
  Report Type: Spontaneous
  Country: FR (occurrence: FR)
  Receive Date: 20180525
  Receipt Date: 20180525
  Transmission Date: 20180711
  Serious: Yes (Hospitalization)
  Sender: FDA-Public Use
  Company Number: FR-009507513-1805FRA008981

PATIENT
  Age: 71 Year
  Sex: Male
  Weight: 68 kg

DRUGS (8)
  1. PRIMPERAN [Concomitant]
     Active Substance: METOCLOPRAMIDE HYDROCHLORIDE
     Route: 048
  2. KARDEGIC [Concomitant]
     Active Substance: ASPIRIN DL-LYSINE
  3. OXYNORM [Concomitant]
     Active Substance: OXYCODONE HYDROCHLORIDE
     Dosage: AS NECESSARY
     Route: 048
  4. PLAVIX [Concomitant]
     Active Substance: CLOPIDOGREL BISULFATE
     Route: 048
  5. LYRICA [Concomitant]
     Active Substance: PREGABALIN
     Route: 048
  6. CUBICIN [Suspect]
     Active Substance: DAPTOMYCIN
     Indication: ANTIBIOTIC THERAPY
     Route: 040
     Dates: start: 20180130, end: 20180219
  7. TIENAM [Concomitant]
     Active Substance: CILASTATIN SODIUM\IMIPENEM
     Dosage: 500 MG, Q8H
     Route: 041
     Dates: start: 20180130
  8. DOLIPRANE [Concomitant]
     Active Substance: ACETAMINOPHEN
     Route: 048

REACTIONS (1)
  - Acute interstitial pneumonitis [Recovered/Resolved]

NARRATIVE: CASE EVENT DATE: 20180214
